FAERS Safety Report 14934415 (Version 1)
Quarter: 2018Q2

REPORT INFORMATION
  Report Type: Spontaneous
  Country: GB (occurrence: GB)
  Receive Date: 20180524
  Receipt Date: 20180524
  Transmission Date: 20180711
  Serious: Yes (Other)
  Sender: FDA-Public Use
  Company Number: GB-TEVA-2018-GB-895137

PATIENT
  Age: 22 Year
  Sex: Female
  Weight: 69.85 kg

DRUGS (2)
  1. FOLIC ACID. [Suspect]
     Active Substance: FOLIC ACID
     Indication: ANAEMIA FOLATE DEFICIENCY
     Dosage: 5 MILLIGRAM DAILY;
     Route: 048
     Dates: start: 20180209
  2. LEVONORGESTREL. [Concomitant]
     Active Substance: LEVONORGESTREL
     Route: 065

REACTIONS (1)
  - Decreased appetite [Recovered/Resolved with Sequelae]
